FAERS Safety Report 5214485-4 (Version None)
Quarter: 2007Q1

REPORT INFORMATION
  Report Type: 
  Country: None (occurrence: None)
  Receive Date: 20070116
  Receipt Date: 20070105
  Transmission Date: 20070707
  Serious: Yes (Hospitalization, Other)
  Sender: FDA-Public Use
  Company Number: AUWYE038105JAN07

PATIENT
  Age: 1 Day
  Sex: Female

DRUGS (2)
  1. EFFEXOR XR [Suspect]
     Dosage: SEE IMAGE
     Route: 064
     Dates: start: 20060801, end: 20060901
  2. EFFEXOR XR [Suspect]
     Dosage: SEE IMAGE
     Route: 064
     Dates: start: 20060901, end: 20061001

REACTIONS (2)
  - DRUG EXPOSURE DURING PREGNANCY [None]
  - PREMATURE BABY [None]
